FAERS Safety Report 8585598-4 (Version None)
Quarter: 2012Q3

REPORT INFORMATION
  Report Type: 
  Country: None (occurrence: None)
  Receive Date: 20120810
  Receipt Date: 20120731
  Transmission Date: 20120928
  Serious: Yes (Hospitalization)
  Sender: FDA-Public Use
  Company Number: US-BAYER-2012-045700

PATIENT
  Age: 32 Year
  Sex: Female

DRUGS (8)
  1. YAZ [Suspect]
  2. NORVASC [Concomitant]
  3. MACROBID [Concomitant]
  4. ZOLOFT [Concomitant]
     Dosage: 50 MG, DAILY
  5. YASMIN [Suspect]
  6. ZOLOFT [Concomitant]
     Dosage: 25 MG, DAILY
  7. TORADOL [Concomitant]
  8. ATIVAN [Concomitant]

REACTIONS (8)
  - ANXIETY [None]
  - INJURY [None]
  - EMOTIONAL DISTRESS [None]
  - QUALITY OF LIFE DECREASED [None]
  - MYOCARDIAL INFARCTION [None]
  - PAIN [None]
  - FEAR [None]
  - ANHEDONIA [None]
